FAERS Safety Report 24788556 (Version 1)
Quarter: 2024Q4

REPORT INFORMATION
  Report Type: Spontaneous
  Country: ES (occurrence: ES)
  Receive Date: 20241230
  Receipt Date: 20241230
  Transmission Date: 20250115
  Serious: Yes (Life-Threatening, Hospitalization)
  Sender: ACCORD
  Company Number: None

PATIENT
  Age: 78 Year
  Sex: Female

DRUGS (2)
  1. CARBOPLATIN [Suspect]
     Active Substance: CARBOPLATIN
     Indication: Transitional cell carcinoma
     Dosage: START EVERY 21 DAYS X 4. LAST CYCLE 15/05/2024, STRENGTH: 10MG/ML, EFG, 1 VIAL OF 45 ML
     Dates: start: 20240515
  2. GEMCITABINE [Concomitant]
     Active Substance: GEMCITABINE
     Indication: Transitional cell carcinoma
     Dosage: STRENGTH: 1000 MG, 1 VIAL OF 26.3 ML
     Dates: start: 20240515

REACTIONS (1)
  - Pancytopenia [Recovered/Resolved]

NARRATIVE: CASE EVENT DATE: 20240521
